FAERS Safety Report 9713365 (Version 2)
Quarter: 2013Q4

REPORT INFORMATION
  Report Type: Spontaneous
  Country: DE (occurrence: DE)
  Receive Date: 20131126
  Receipt Date: 20131126
  Transmission Date: 20140711
  Serious: Yes (Hospitalization)
  Sender: FDA-Public Use
  Company Number: PHHY2013DE091612

PATIENT
  Sex: Male

DRUGS (4)
  1. VOLTAREN DISPERS [Suspect]
     Indication: PREOPERATIVE CARE
     Dosage: UNK UKN, BID
     Route: 048
     Dates: start: 1999, end: 199909
  2. VOLTAREN DISPERS [Suspect]
     Indication: PAIN
  3. VOLTAREN RESINAT 20 KAP [Suspect]
     Indication: PREOPERATIVE CARE
     Dosage: UNK UKN, BID
     Route: 048
     Dates: start: 1999, end: 199909
  4. VOLTAREN RESINAT 20 KAP [Suspect]
     Indication: PAIN

REACTIONS (7)
  - Thrombocytopenia [Recovered/Resolved]
  - Cyanosis [Recovered/Resolved]
  - Haemorrhagic diathesis [Recovered/Resolved]
  - Haemorrhage [Recovered/Resolved]
  - Platelet count decreased [Recovered/Resolved]
  - Petechiae [Recovered/Resolved]
  - Skin disorder [Recovered/Resolved]
